FAERS Safety Report 8987786 (Version 1)
Quarter: 2012Q4

REPORT INFORMATION
  Report Type: 
  Country: US (occurrence: US)
  Receive Date: 20121227
  Receipt Date: 20121227
  Transmission Date: 20130627
  Serious: Yes (Other)
  Sender: FDA-Public Use
  Company Number: US-BAYER-2012-133956

PATIENT
  Age: 88 Year
  Sex: Female
  Weight: 62.59 kg

DRUGS (6)
  1. BAYER ASPIRIN REGIMEN ADULT LOW STRENGTH [Suspect]
     Indication: MYOCARDIAL INFARCT PROPHYLAXIS
     Dosage: 1 DF, QD
     Route: 048
  2. PRILOSEC [Concomitant]
  3. ENALAPRIL [Concomitant]
  4. ARIMIDEX [Concomitant]
  5. PLAVIX [Concomitant]
  6. ONE A DAY WOMEN^S 50+ ADVANTAGE [Concomitant]

REACTIONS (1)
  - Off label use [None]
